FAERS Safety Report 7783992-2 (Version None)
Quarter: 2011Q3

REPORT INFORMATION
  Report Type: 
  Country: None (occurrence: None)
  Receive Date: 20110928
  Receipt Date: 20110920
  Transmission Date: 20111222
  Serious: Yes (Death, Hospitalization)
  Sender: FDA-Public Use
  Company Number: ES-BAXTER-2011BH029993

PATIENT
  Age: 67 Year
  Sex: Male

DRUGS (7)
  1. FEIBA [Suspect]
     Indication: HAEMOSTASIS
     Route: 065
  2. FEIBA [Suspect]
     Indication: RECTAL HAEMORRHAGE
     Route: 065
  3. NOVOSEVEN [Suspect]
     Indication: RECTAL HAEMORRHAGE
     Route: 065
  4. OCTANATE [Suspect]
     Indication: ACQUIRED HAEMOPHILIA
     Route: 065
  5. OCTANATE [Suspect]
     Indication: RECTAL HAEMORRHAGE
     Route: 065
  6. FEIBA [Suspect]
     Indication: ACQUIRED HAEMOPHILIA
     Route: 065
  7. NOVOSEVEN [Suspect]
     Indication: ACQUIRED HAEMOPHILIA
     Route: 065

REACTIONS (2)
  - PNEUMONIA [None]
  - PULMONARY SEPSIS [None]
